FAERS Safety Report 17421039 (Version 1)
Quarter: 2020Q1

REPORT INFORMATION
  Report Type: Report from Study
  Country: None (occurrence: US)
  Receive Date: 20200214
  Receipt Date: 20200214
  Transmission Date: 20200409
  Serious: Yes (Other)
  Sender: FDA-Public Use
  Company Number: US-ABBVIE-18K-163-3105940-00

PATIENT
  Age: 70 Year
  Sex: Female

DRUGS (3)
  1. IMBRUVICA [Suspect]
     Active Substance: IBRUTINIB
     Dosage: 420 MG, QD
     Route: 048
  2. IMBRUVICA [Suspect]
     Active Substance: IBRUTINIB
     Indication: WALDENSTROM^S MACROGLOBULINAEMIA
     Dosage: 420 MG, QD
     Route: 048
     Dates: start: 20180501
  3. IMBRUVICA [Suspect]
     Active Substance: IBRUTINIB
     Indication: WALDENSTROM^S MACROGLOBULINAEMIA
     Dosage: 420 MG, QD
     Route: 048
     Dates: start: 20150501, end: 20180430

REACTIONS (9)
  - Fatigue [Recovered/Resolved]
  - Asthma [Not Recovered/Not Resolved]
  - Thinking abnormal [Unknown]
  - Acne cystic [Unknown]
  - Blood immunoglobulin M decreased [Unknown]
  - Deafness [Not Recovered/Not Resolved]
  - Rash pruritic [Not Recovered/Not Resolved]
  - Hair texture abnormal [Not Recovered/Not Resolved]
  - Memory impairment [Unknown]

NARRATIVE: CASE EVENT DATE: 201801
